FAERS Safety Report 20034704 (Version 4)
Quarter: 2022Q1

REPORT INFORMATION
  Report Type: Report from Study
  Country: US (occurrence: None)
  Receive Date: 20211104
  Receipt Date: 20220330
  Transmission Date: 20220423
  Serious: Yes (Other)
  Sender: FDA-Public Use
  Company Number: US-Merck Healthcare KGaA-9277450

PATIENT
  Age: 51 Year
  Sex: Female

DRUGS (1)
  1. REBIF [Suspect]
     Active Substance: INTERFERON BETA-1A
     Indication: Multiple sclerosis
     Route: 058
     Dates: start: 20170811

REACTIONS (3)
  - Rotator cuff syndrome [Recovering/Resolving]
  - Exostosis [Recovering/Resolving]
  - Lipoma [Recovering/Resolving]

NARRATIVE: CASE EVENT DATE: 20180101
